FAERS Safety Report 6391517-1 (Version None)
Quarter: 2009Q4

REPORT INFORMATION
  Report Type: 
  Country: None (occurrence: None)
  Receive Date: 20091007
  Receipt Date: 20090923
  Transmission Date: 20100525
  Serious: Yes (Hospitalization, Congenital Anomaly, Other)
  Sender: FDA-Public Use
  Company Number: US-PFIZER INC-2009273242

PATIENT
  Sex: Female

DRUGS (5)
  1. DETROL LA [Suspect]
     Dosage: UNK
     Route: 064
  2. REBIF [Suspect]
     Indication: MULTIPLE SCLEROSIS
     Dosage: UNK
     Route: 064
     Dates: start: 20060101, end: 20060101
  3. AMANTADINE [Suspect]
     Route: 064
  4. LEVOTHYROXINE [Concomitant]
     Dosage: UNK
     Route: 064
  5. CALCIUM [Concomitant]
     Dosage: UNK
     Route: 064

REACTIONS (5)
  - CONGENITAL MITOCHONDRIAL CYTOPATHY [None]
  - DRUG EXPOSURE DURING PREGNANCY [None]
  - ESCHERICHIA INFECTION [None]
  - GROWTH RETARDATION [None]
  - PREMATURE BABY [None]
